FAERS Safety Report 10210864 (Version 2)
Quarter: 2015Q1

REPORT INFORMATION
  Report Type: Spontaneous
  Country: US (occurrence: None)
  Receive Date: 20140528
  Receipt Date: 20150116
  Transmission Date: 20150720
  Serious: Yes (Death, Other)
  Sender: FDA-Public Use
  Company Number: UNT-2014-000810

PATIENT
  Age: 55 Year
  Sex: Female
  Weight: 66.7 kg

DRUGS (17)
  1. LYRICA [Concomitant]
     Active Substance: PREGABALIN
  2. REMODULIN [Suspect]
     Active Substance: TREPROSTINIL
     Indication: PULMONARY ARTERIAL HYPERTENSION
     Dates: start: 20140407, end: 20140510
  3. BUMETANIDE (BUMETANIDE) [Concomitant]
     Active Substance: BUMETANIDE
  4. CHOLESTYRAMINE (COLESTYRAMINE) [Concomitant]
  5. METFORMIN [Concomitant]
     Active Substance: METFORMIN HYDROCHLORIDE
  6. OMEPRAZOLE (OMEPRAZOLE) [Concomitant]
     Active Substance: OMEPRAZOLE
  7. TYVASO [Suspect]
     Active Substance: TREPROSTINIL
     Indication: PRODUCT USED FOR UNKNOWN INDICATION
     Dates: start: 201303, end: 20140407
  8. GLIPIZIDE (GLIPIZIDE) [Concomitant]
     Active Substance: GLIPIZIDE
  9. METOPROLOL (METOPROLOL) [Concomitant]
     Active Substance: METOPROLOL
  10. LETAIRIS (LETAIRIS) [Concomitant]
  11. SERTRALINE [Concomitant]
     Active Substance: SERTRALINE HYDROCHLORIDE
  12. ADCIRCA [Concomitant]
     Active Substance: TADALAFIL
  13. OXYGEN (OXYGEN) [Concomitant]
     Active Substance: OXYGEN
  14. ZOFRAN (ONDANSETRON) [Concomitant]
  15. ASPIRIN (ACETYLSALICYLIC ACID) [Concomitant]
     Active Substance: ASPIRIN
  16. CLONAZEPAM (CLONAZEPAM) [Concomitant]
     Active Substance: CLONAZEPAM
  17. SLOW FE (FERROUS SULFATE) [Concomitant]

REACTIONS (7)
  - Pain in extremity [None]
  - Myocardial infarction [None]
  - Dyspnoea [None]
  - Pulmonary arterial hypertension [None]
  - Blood pressure decreased [None]
  - Death [None]
  - Infusion site pain [None]

NARRATIVE: CASE EVENT DATE: 20140509
